FAERS Safety Report 9335225 (Version 6)
Quarter: 2014Q1

REPORT INFORMATION
  Report Type: Spontaneous
  Country: US (occurrence: US)
  Receive Date: 20130606
  Receipt Date: 20140204
  Transmission Date: 20141002
  Serious: Yes (Hospitalization, Other)
  Sender: FDA-Public Use
  Company Number: US-009507513-1305USA017089

PATIENT
  Sex: Female
  Weight: 57.6 kg

DRUGS (9)
  1. FOSAMAX [Suspect]
     Indication: OSTEOPOROSIS
     Dosage: 70 MG, QW
     Route: 048
     Dates: start: 20000721, end: 20030616
  2. FOSAMAX [Suspect]
     Indication: OSTEOPENIA
     Dosage: 70 MG, QW
     Route: 048
     Dates: start: 20070815, end: 20111013
  3. FOSAMAX [Suspect]
     Dosage: 10 MG, UNK
     Route: 048
  4. FOSAMAX PLUS D [Suspect]
     Indication: OSTEOPOROSIS
     Dosage: UNK
     Route: 048
     Dates: start: 200007, end: 2011
  5. FOSAMAX PLUS D [Suspect]
     Indication: OSTEOPENIA
  6. ALENDRONATE SODIUM [Suspect]
     Indication: OSTEOPOROSIS
     Dosage: 70 MG, UNK
     Route: 048
     Dates: start: 200007, end: 2011
  7. ALENDRONATE SODIUM [Suspect]
     Indication: OSTEOPENIA
  8. BONIVA [Suspect]
     Dosage: UNK
     Dates: start: 200007, end: 2011
  9. ACTONEL [Suspect]
     Dosage: UNK
     Dates: start: 200007, end: 2011

REACTIONS (34)
  - Femur fracture [Unknown]
  - Intramedullary rod insertion [Unknown]
  - Hip fracture [Unknown]
  - Breast reconstruction [Unknown]
  - Anaemia [Unknown]
  - Drug administration error [Unknown]
  - Adverse event [Unknown]
  - Vitamin D deficiency [Unknown]
  - Atrophic vulvovaginitis [Unknown]
  - Essential hypertension [Unknown]
  - Contusion [Unknown]
  - Fall [Unknown]
  - Joint injury [Unknown]
  - Arthritis [Unknown]
  - Joint crepitation [Unknown]
  - Osteoarthritis [Unknown]
  - Meniscal degeneration [Unknown]
  - Ligament sprain [Unknown]
  - Hyperreflexia [Unknown]
  - Toothache [Unknown]
  - Dental caries [Unknown]
  - Sensitivity of teeth [Unknown]
  - Skeletal injury [Unknown]
  - Limb injury [Unknown]
  - Migraine [Unknown]
  - Fibromyalgia [Unknown]
  - Tonsillectomy [Unknown]
  - Hysterectomy [Unknown]
  - Central venous catheterisation [Unknown]
  - Knee operation [Unknown]
  - Anaemia [Not Recovered/Not Resolved]
  - Leukocytosis [Recovered/Resolved]
  - Dyslipidaemia [Unknown]
  - Gastritis [Unknown]
